FAERS Safety Report 4815747-2 (Version None)
Quarter: 2005Q4

REPORT INFORMATION
  Report Type: 
  Country: None (occurrence: None)
  Receive Date: 20051031
  Receipt Date: 20051026
  Transmission Date: 20060501
  Serious: Yes (Hospitalization)
  Sender: FDA-Public Use
  Company Number: 2005CG01789

PATIENT
  Age: 41 Year
  Sex: Female

DRUGS (3)
  1. XYLOCAINE [Suspect]
     Indication: LOCAL ANAESTHESIA
     Route: 058
     Dates: start: 20051018, end: 20051018
  2. HYDROCORTANCYL [Concomitant]
     Indication: SCIATICA
     Route: 008
     Dates: start: 20051018, end: 20051018
  3. IOPAMIRON [Concomitant]
     Indication: DIAGNOSTIC PROCEDURE
     Route: 008
     Dates: start: 20051018, end: 20051018

REACTIONS (3)
  - CEREBRAL HAEMORRHAGE [None]
  - CONVULSION [None]
  - HEADACHE [None]
